FAERS Safety Report 9761292 (Version 2)
Quarter: 2014Q1

REPORT INFORMATION
  Report Type: Spontaneous
  Country: US (occurrence: US)
  Receive Date: 20131216
  Receipt Date: 20140318
  Transmission Date: 20141002
  Serious: No
  Sender: FDA-Public Use
  Company Number: US-PFIZER INC-2013355811

PATIENT
  Age: 62 Year
  Sex: Female

DRUGS (14)
  1. XELJANZ [Suspect]
     Indication: RHEUMATOID ARTHRITIS
     Dosage: 5 MG, 2X/DAY
     Route: 048
     Dates: start: 201312
  2. AMITRIPTYLINE HYDROCHLORIDE [Concomitant]
     Dosage: UNK
  3. PREDNISONE [Concomitant]
     Dosage: UNK
  4. CALCIUM [Concomitant]
     Dosage: UNK
  5. FISH OIL [Concomitant]
     Dosage: UNK
  6. VITAMIN D [Concomitant]
     Dosage: UNK
  7. VIMOVO [Concomitant]
     Dosage: UNK
  8. LEFLUNOMIDE [Concomitant]
     Dosage: UNK
  9. FLUTICASONE [Concomitant]
     Dosage: UNK
  10. AZELASTINE [Concomitant]
     Dosage: UNK
  11. ADVAIR DISKUS [Concomitant]
     Dosage: UNK
  12. LOSARTAN [Concomitant]
     Dosage: UNK
  13. VENTOLIN HFA [Concomitant]
     Dosage: LNH
  14. FOLIC ACID [Concomitant]
     Dosage: UNK

REACTIONS (4)
  - Headache [Unknown]
  - Fatigue [Unknown]
  - Dermatitis contact [Unknown]
  - Swelling face [Unknown]
